FAERS Safety Report 4455230-X (Version None)
Quarter: 2004Q3

REPORT INFORMATION
  Report Type: 
  Country: None (occurrence: None)
  Receive Date: 20040830
  Receipt Date: 20040603
  Transmission Date: 20050211
  Serious: No
  Sender: FDA-Public Use
  Company Number: 205895

PATIENT
  Age: 12 Year
  Sex: Male
  Weight: 52.6 kg

DRUGS (1)
  1. XOLAIR [Suspect]
     Indication: ASTHMA
     Dosage: 300 MG,Q2W,SUBCUTANEOUS
     Route: 058

REACTIONS (2)
  - INJECTION SITE REACTION [None]
  - URTICARIA [None]
